FAERS Safety Report 8608314 (Version 5)
Quarter: 2012Q4

REPORT INFORMATION
  Report Type: Report from Study
  Country: US (occurrence: US)
  Receive Date: 20120611
  Receipt Date: 20120927
  Transmission Date: 20130627
  Serious: Yes (Hospitalization)
  Sender: FDA-Public Use
  Company Number: US-JNJFOC-20120602829

PATIENT
  Age: 15 Year
  Sex: Female
  Weight: 37 kg

DRUGS (4)
  1. REMICADE [Suspect]
     Indication: CROHN^S DISEASE
     Route: 042
     Dates: start: 20090826
  2. PREDNISONE [Concomitant]
  3. NEXIUM [Concomitant]
  4. PHENAZOPYRIDINE HYDROCHLORIDE [Concomitant]

REACTIONS (1)
  - Small intestinal obstruction [Recovered/Resolved with Sequelae]
